FAERS Safety Report 7215072-9 (Version None)
Quarter: 2011Q1

REPORT INFORMATION
  Report Type: 
  Country: None (occurrence: None)
  Receive Date: 20110107
  Receipt Date: 20100805
  Transmission Date: 20110831
  Serious: No
  Sender: FDA-Public Use
  Company Number: A0874218A

PATIENT
  Sex: Male

DRUGS (10)
  1. MULTIVITAMIN [Concomitant]
  2. CARVEDILOL [Concomitant]
  3. ASPIRIN [Concomitant]
  4. UNSPECIFIED DRUG [Concomitant]
  5. BENICAR [Concomitant]
  6. METFORMIN [Concomitant]
  7. LIPITOR [Concomitant]
  8. LOVAZA [Suspect]
     Dosage: 2G TWICE PER DAY
     Route: 048
     Dates: start: 20090101
  9. GLYBURIDE [Concomitant]
  10. TRICOR [Concomitant]

REACTIONS (1)
  - MEDICATION RESIDUE [None]
